FAERS Safety Report 15309941 (Version 1)
Quarter: 2018Q3

REPORT INFORMATION
  Report Type: Spontaneous
  Country: US (occurrence: US)
  Receive Date: 20180823
  Receipt Date: 20180823
  Transmission Date: 20181010
  Serious: No
  Sender: FDA-Public Use
  Company Number: US-BAYER-2018-157018

PATIENT
  Age: 77 Year
  Sex: Female
  Weight: 73.47 kg

DRUGS (3)
  1. MIRALAX [Suspect]
     Active Substance: POLYETHYLENE GLYCOL 3350
     Indication: GASTROINTESTINAL DISORDER
     Dosage: 17 G, UNK (4?8 OUNCES OF BEVERAGE)
     Route: 048
     Dates: start: 20180818, end: 20180818
  2. CENTRUM [Concomitant]
     Active Substance: VITAMINS
  3. VITAMIN D [Concomitant]
     Active Substance: CHOLECALCIFEROL

REACTIONS (2)
  - Poor quality drug administered [None]
  - Product contamination physical [None]

NARRATIVE: CASE EVENT DATE: 20180818
